FAERS Safety Report 6740141-7 (Version None)
Quarter: 2010Q2

REPORT INFORMATION
  Report Type: 
  Country: None (occurrence: None)
  Receive Date: 20100525
  Receipt Date: 20100517
  Transmission Date: 20101027
  Serious: Yes (Death, Hospitalization)
  Sender: FDA-Public Use
  Company Number: A0773087A

PATIENT
  Age: 88 Year
  Sex: Male
  Weight: 90.9 kg

DRUGS (10)
  1. AVANDIA [Suspect]
     Dosage: 2MG TWICE PER DAY
     Route: 048
     Dates: start: 19991001, end: 20060701
  2. AVANDAMET [Suspect]
     Route: 048
  3. PROTONIX [Concomitant]
  4. INSULIN [Concomitant]
  5. GLUCERNA [Concomitant]
  6. BETHANECHOL [Concomitant]
  7. GLUCOPHAGE [Concomitant]
  8. TERAZOSIN HCL [Concomitant]
  9. GLYBURIDE [Concomitant]
  10. THYROID MEDICATION [Concomitant]

REACTIONS (9)
  - CARDIAC FAILURE CONGESTIVE [None]
  - COMA [None]
  - CORONARY ARTERY DISEASE [None]
  - KIDNEY INFECTION [None]
  - MYOCARDIAL INFARCTION [None]
  - RENAL FAILURE ACUTE [None]
  - RESPIRATORY FAILURE [None]
  - SEPSIS [None]
  - STAPHYLOCOCCAL INFECTION [None]
